FAERS Safety Report 13923865 (Version 1)
Quarter: 2017Q3

REPORT INFORMATION
  Report Type: Spontaneous
  Country: US (occurrence: None)
  Receive Date: 20170830
  Receipt Date: 20170830
  Transmission Date: 20171127
  Serious: No
  Sender: FDA-Public Use
  Company Number: None

PATIENT
  Age: 57 Year
  Sex: Male

DRUGS (3)
  1. DAKLINZA [Suspect]
     Active Substance: DACLATASVIR
  2. SOVALDI [Concomitant]
     Active Substance: SOFOSBUVIR
  3. RIBAVIRIN. [Concomitant]
     Active Substance: RIBAVIRIN

REACTIONS (2)
  - Drug dose omission [None]
  - Memory impairment [None]

NARRATIVE: CASE EVENT DATE: 20170828
